FAERS Safety Report 7554086-6 (Version None)
Quarter: 2011Q2

REPORT INFORMATION
  Report Type: 
  Country: None (occurrence: None)
  Receive Date: 20110610
  Receipt Date: 20110527
  Transmission Date: 20111010
  Serious: Yes (Other)
  Sender: FDA-Public Use
  Company Number: RB-25879-2011

PATIENT
  Sex: Female

DRUGS (1)
  1. DELSYM [Suspect]
     Dosage: ORAL
     Route: 048

REACTIONS (1)
  - SYNCOPE [None]
